FAERS Safety Report 19739879 (Version 4)
Quarter: 2021Q4

REPORT INFORMATION
  Report Type: Spontaneous
  Country: HR (occurrence: HR)
  Receive Date: 20210823
  Receipt Date: 20211001
  Transmission Date: 20220303
  Serious: Yes (Death, Other)
  Sender: FDA-Public Use
  Company Number: NVSC2021HR190121

PATIENT
  Age: 60 Year
  Sex: Female

DRUGS (8)
  1. COSENTYX [Suspect]
     Active Substance: SECUKINUMAB
     Indication: Psoriasis
     Dosage: UNK
     Route: 065
     Dates: start: 201805, end: 202004
  2. PANTOPRAZOLE SODIUM [Concomitant]
     Active Substance: PANTOPRAZOLE SODIUM
     Indication: Product used for unknown indication
     Dosage: 40 MG, BID
     Route: 065
  3. FUROSEMIDE [Concomitant]
     Active Substance: FUROSEMIDE
     Indication: Product used for unknown indication
     Dosage: 40 MG, BID
     Route: 065
  4. ALDACTONE [Concomitant]
     Active Substance: SPIRONOLACTONE
     Indication: Product used for unknown indication
     Dosage: 100 MG, BID
     Route: 065
  5. LACTULOSE [Concomitant]
     Active Substance: LACTULOSE
     Indication: Product used for unknown indication
     Dosage: 20 ML (20 ML IN 2 DCL WATER 1-2X DAY)
     Route: 065
  6. FRESUBIN HEPA [Concomitant]
     Indication: Product used for unknown indication
     Dosage: 2 DF QD (2X1 AS DIETARY SUPPLEMENT)
     Route: 065
  7. ACETAMINOPHEN\TRAMADOL HYDROCHLORIDE [Concomitant]
     Active Substance: ACETAMINOPHEN\TRAMADOL HYDROCHLORIDE
     Indication: Pain
     Dosage: UNK
     Route: 065
  8. ZALDIAR [Concomitant]
     Active Substance: ACETAMINOPHEN\TRAMADOL HYDROCHLORIDE
     Indication: Pain
     Dosage: UNK (ZALDIAR PM)
     Route: 065

REACTIONS (21)
  - Sepsis [Fatal]
  - Peritonitis [Fatal]
  - Altered state of consciousness [Fatal]
  - Anuria [Fatal]
  - Thrombocytopenia [Fatal]
  - Tachypnoea [Fatal]
  - Hypotension [Fatal]
  - Anaemia macrocytic [Fatal]
  - General physical health deterioration [Fatal]
  - Hepatic cirrhosis [Fatal]
  - Ascites [Fatal]
  - Blood bilirubin increased [Fatal]
  - Blood lactate dehydrogenase increased [Fatal]
  - Aspartate aminotransferase increased [Fatal]
  - Blood creatine phosphokinase increased [Fatal]
  - Jaundice [Fatal]
  - Chromaturia [Fatal]
  - Pruritus [Fatal]
  - Oedema peripheral [Fatal]
  - Dry skin [Not Recovered/Not Resolved]
  - Eczema [Unknown]

NARRATIVE: CASE EVENT DATE: 20200201
